FAERS Safety Report 6453158-7 (Version None)
Quarter: 2009Q4

REPORT INFORMATION
  Report Type: 
  Country: None (occurrence: None)
  Receive Date: 20091124
  Receipt Date: 20091117
  Transmission Date: 20100525
  Serious: Yes (Death, Other)
  Sender: FDA-Public Use
  Company Number: US-PFIZER INC-2009299665

PATIENT
  Sex: Female
  Weight: 95.2 kg

DRUGS (5)
  1. XANAX [Suspect]
     Indication: DRUG USE FOR UNKNOWN INDICATION
     Dosage: UNK
     Route: 048
  2. FENTANYL [Suspect]
     Indication: PROCEDURAL PAIN
     Dosage: 100 MCG (1 PATCH, Q 72 HOURS)
     Route: 062
     Dates: start: 20091029, end: 20091101
  3. FENTANYL [Suspect]
     Indication: PAIN
     Dosage: 75 MCG (1 PATCH, Q 72 HOURS)
     Route: 062
     Dates: start: 20090701, end: 20091028
  4. LORTAB [Concomitant]
     Dosage: UNK
     Dates: end: 20090101
  5. SOMA [Concomitant]
     Dosage: 350 MG, UNK
     Dates: end: 20090101

REACTIONS (8)
  - ASPHYXIA [None]
  - DRUG INEFFECTIVE [None]
  - MALAISE [None]
  - NAUSEA [None]
  - OVERDOSE [None]
  - SOMNOLENCE [None]
  - UNRESPONSIVE TO STIMULI [None]
  - VOMITING [None]
